FAERS Safety Report 7288531-0 (Version None)
Quarter: 2011Q1

REPORT INFORMATION
  Report Type: 
  Country: None (occurrence: None)
  Receive Date: 20110201
  Receipt Date: 20110117
  Transmission Date: 20110831
  Serious: Yes (Hospitalization)
  Sender: FDA-Public Use
  Company Number: 1000018538

PATIENT
  Age: 80 Year

DRUGS (7)
  1. ESCITALOPRAM [Concomitant]
  2. EQUANIL [Suspect]
     Indication: ANXIETY
     Dosage: 1200 MG (400 MG, 3 IN 1 D), ORAL
     Route: 048
     Dates: start: 20100731, end: 20100805
  3. MEMANTINE [Suspect]
     Indication: DEMENTIA ALZHEIMER'S TYPE
     Dosage: 5 MG (5 MG, 1 IN 1 D), ORAL
     Route: 048
     Dates: end: 20100810
  4. HALDOL [Suspect]
     Indication: AGITATION
     Dosage: ORAL
     Route: 048
     Dates: start: 20100805, end: 20100805
  5. RISPERDAL [Suspect]
     Indication: AGITATION
     Dosage: 1 ML (1 IN 1 D), ORAL
     Route: 048
     Dates: start: 20100806, end: 20100809
  6. NOROXINE (NORFLOXACIN) (TABLETS) (NORFLOXACIN) [Concomitant]
  7. LOXAPAC (LOXAPINE) (DROPS (FOR ORAL USE)) [Suspect]
     Indication: AGITATION
     Dosage: 5 GTT (5 GTT, 1 IN 1 D), ORAL
     Route: 048
     Dates: start: 20100806, end: 20100808

REACTIONS (9)
  - COMA [None]
  - SOMNOLENCE [None]
  - APATHY [None]
  - CONDITION AGGRAVATED [None]
  - URINARY TRACT INFECTION [None]
  - URINARY RETENTION [None]
  - FALL [None]
  - ABNORMAL BEHAVIOUR [None]
  - COGNITIVE DISORDER [None]
